FAERS Safety Report 18412906 (Version 1)
Quarter: 2020Q4

REPORT INFORMATION
  Report Type: Spontaneous
  Country: US (occurrence: US)
  Receive Date: 20201022
  Receipt Date: 20201022
  Transmission Date: 20210114
  Serious: No
  Sender: FDA-Public Use
  Company Number: US-TEVA-2020-US-1840360

PATIENT

DRUGS (2)
  1. NEFAZODONE [Suspect]
     Active Substance: NEFAZODONE
     Dosage: 400 MILLIGRAM EVERY DAY
     Route: 065
     Dates: start: 2010, end: 20201007
  2. BUSPAR [Suspect]
     Active Substance: BUSPIRONE HYDROCHLORIDE
     Route: 065

REACTIONS (11)
  - Chest pain [Unknown]
  - Feeling abnormal [Unknown]
  - Irritability [Unknown]
  - Withdrawal syndrome [Unknown]
  - Agitation [Unknown]
  - Anxiety [Unknown]
  - Dizziness [Unknown]
  - Depression [Unknown]
  - Product supply issue [Unknown]
  - Panic reaction [Unknown]
  - Ear discomfort [Unknown]

NARRATIVE: CASE EVENT DATE: 20200929
